FAERS Safety Report 7052890-4 (Version None)
Quarter: 2010Q4

REPORT INFORMATION
  Report Type: 
  Country: None (occurrence: None)
  Receive Date: 20101020
  Receipt Date: 20101012
  Transmission Date: 20110411
  Serious: Yes (Hospitalization)
  Sender: FDA-Public Use
  Company Number: US-BIOGENIDEC-2009BI007280

PATIENT
  Age: 49 Year
  Sex: Female

DRUGS (2)
  1. AVONEX [Suspect]
     Indication: MULTIPLE SCLEROSIS
     Route: 030
     Dates: start: 20071112, end: 20090101
  2. AVONEX [Suspect]
     Route: 030
     Dates: start: 20100822

REACTIONS (3)
  - FALL [None]
  - FEMUR FRACTURE [None]
  - HIP FRACTURE [None]
